FAERS Safety Report 8707570 (Version 2)
Quarter: 2013Q4

REPORT INFORMATION
  Report Type: Spontaneous
  Country: US (occurrence: US)
  Receive Date: 20120805
  Receipt Date: 20131031
  Transmission Date: 20140711
  Serious: No
  Sender: FDA-Public Use
  Company Number: US-009507513-2012SP036259

PATIENT
  Age: 59 Year
  Sex: Female
  Weight: 55.33 kg

DRUGS (3)
  1. CLARITIN REDITABS [Suspect]
     Indication: NASAL DISCOMFORT
     Dosage: 10 MG, QAM
     Route: 048
     Dates: start: 201204, end: 201205
  2. CLARITIN REDITABS [Suspect]
     Indication: RHINORRHOEA
  3. CLARITIN REDITABS [Suspect]
     Indication: HYPERSENSITIVITY

REACTIONS (1)
  - Drug ineffective [Unknown]
